FAERS Safety Report 23486776 (Version 3)
Quarter: 2024Q4

REPORT INFORMATION
  Report Type: Spontaneous
  Country: US (occurrence: US)
  Receive Date: 20240206
  Receipt Date: 20241213
  Transmission Date: 20250114
  Serious: Yes (Hospitalization, Other)
  Sender: PFIZER
  Company Number: US-PFIZER INC-202201318602

PATIENT
  Age: 72 Year
  Sex: Male
  Weight: 74.84 kg

DRUGS (2)
  1. VYNDAMAX [Suspect]
     Active Substance: TAFAMIDIS
     Indication: Amyloidosis
     Dosage: 61 MG, ONCE
     Route: 048
  2. AMVUTTRA [Concomitant]
     Active Substance: VUTRISIRAN
     Indication: Amyloidosis
     Dosage: UNK

REACTIONS (3)
  - Cardiac failure congestive [Unknown]
  - Shock [Unknown]
  - Neuropathy peripheral [Unknown]
